FAERS Safety Report 18471627 (Version 1)
Quarter: 2020Q4

REPORT INFORMATION
  Report Type: Report from Study
  Country: US (occurrence: US)
  Receive Date: 20201106
  Receipt Date: 20201106
  Transmission Date: 20210114
  Serious: Yes (Other)
  Sender: FDA-Public Use
  Company Number: US-GILEAD-2020-0502904

PATIENT
  Sex: Male

DRUGS (1)
  1. AMBRISENTAN [Suspect]
     Active Substance: AMBRISENTAN
     Indication: PRODUCT USED FOR UNKNOWN INDICATION
     Dosage: 10 MG
     Route: 065
     Dates: start: 20181220

REACTIONS (9)
  - Cardiac discomfort [Unknown]
  - Swelling [Unknown]
  - Immunodeficiency [Unknown]
  - Discomfort [Unknown]
  - Joint swelling [Unknown]
  - Abdominal distension [Unknown]
  - Cardiac disorder [Unknown]
  - Oedema [Unknown]
  - Peripheral swelling [Unknown]
